FAERS Safety Report 10268900 (Version 1)
Quarter: 2014Q2

REPORT INFORMATION
  Report Type: Spontaneous
  Country: IN (occurrence: IN)
  Receive Date: 20140630
  Receipt Date: 20140630
  Transmission Date: 20141212
  Serious: Yes (Other)
  Sender: FDA-Public Use
  Company Number: IN-BAXTER-2014BAX034741

PATIENT
  Age: 45 Year
  Sex: Male

DRUGS (11)
  1. LACTATED RINGER^S INJECTION USP [Suspect]
     Indication: PRODUCT USED FOR UNKNOWN INDICATION
     Route: 065
  2. MIDAZOLAM [Suspect]
     Indication: PREMEDICATION
     Route: 065
  3. ONDANSETRON [Suspect]
     Indication: PREMEDICATION
     Route: 065
  4. FENTANYL [Suspect]
     Indication: PREMEDICATION
     Route: 065
  5. DICLOFENAC [Suspect]
     Indication: PREMEDICATION
     Route: 065
  6. THIOPENTONE [Suspect]
     Indication: INDUCTION OF ANAESTHESIA
     Route: 065
  7. SUXAMETHONIUM [Suspect]
     Indication: INDUCTION OF ANAESTHESIA
     Route: 065
  8. PROPOFOL [Suspect]
     Indication: MAINTENANCE OF ANAESTHESIA
     Route: 065
  9. VECURONIUM [Suspect]
     Indication: MAINTENANCE OF ANAESTHESIA
     Route: 065
  10. NEOSTIGMINE [Suspect]
     Indication: ANAESTHESIA REVERSAL
     Route: 065
  11. GLYCOPYRROLATE [Suspect]
     Indication: ANAESTHESIA REVERSAL
     Route: 065

REACTIONS (1)
  - Non-cardiogenic pulmonary oedema [Recovered/Resolved]
